FAERS Safety Report 18988261 (Version 1)
Quarter: 2021Q1

REPORT INFORMATION
  Report Type: Spontaneous
  Country: US (occurrence: US)
  Receive Date: 20210309
  Receipt Date: 20210309
  Transmission Date: 20210420
  Serious: Yes (Death, Other)
  Sender: FDA-Public Use
  Company Number: US-GLAXOSMITHKLINE-US2021GSK048575

PATIENT
  Sex: Female

DRUGS (2)
  1. ZANTAC [Suspect]
     Active Substance: RANITIDINE HYDROCHLORIDE
     Indication: HYPERCHLORHYDRIA
     Dosage: 150 MG,OCCASIONAL
     Route: 065
     Dates: start: 199604, end: 200304
  2. ZANTAC [Suspect]
     Active Substance: RANITIDINE HYDROCHLORIDE
     Indication: HYPERCHLORHYDRIA
     Dosage: 150 MG,OCCASIONAL
     Route: 065
     Dates: start: 199604, end: 200304

REACTIONS (3)
  - Colorectal cancer [Unknown]
  - Neoplasm malignant [Fatal]
  - Lung neoplasm malignant [Unknown]
